FAERS Safety Report 7668238 (Version 3)
Quarter: 2013Q3

REPORT INFORMATION
  Report Type: Spontaneous
  Country: US (occurrence: US)
  Receive Date: 20101115
  Receipt Date: 20130802
  Transmission Date: 20140515
  Serious: Yes (Other)
  Sender: FDA-Public Use
  Company Number: US-ROCHE-718946

PATIENT
  Age: 18 Year
  Sex: Female
  Weight: 49.9 kg

DRUGS (2)
  1. ACCUTANE [Suspect]
     Indication: ACNE
     Route: 065
     Dates: start: 19910812, end: 199201
  2. ACCUTANE [Suspect]
     Route: 065
     Dates: start: 19940816, end: 199412

REACTIONS (9)
  - Colitis ulcerative [Unknown]
  - Gastrointestinal injury [Unknown]
  - Inflammatory bowel disease [Unknown]
  - Suicidal ideation [Unknown]
  - Depression [Unknown]
  - Eczema [Unknown]
  - Acne [Unknown]
  - Epistaxis [Unknown]
  - Viral infection [Unknown]
